FAERS Safety Report 9529287 (Version 1)
Quarter: 2013Q1

REPORT INFORMATION
  Report Type: Spontaneous
  Country: US (occurrence: None)
  Receive Date: 20130320
  Receipt Date: 20130320
  Transmission Date: 20140127
  Serious: Yes (Death, Other)
  Sender: FDA-Public Use
  Company Number: 075079

PATIENT
  Age: 43 Year
  Sex: Male

DRUGS (6)
  1. ALPRAZOLAM [Suspect]
  2. FENTANYL [Suspect]
  3. OXYCODONE [Suspect]
  4. DIAZEPAM [Suspect]
  5. PHENYTOIN [Suspect]
  6. FLUOXETINE [Suspect]

REACTIONS (2)
  - Cardio-respiratory arrest [None]
  - Drug abuse [None]
